FAERS Safety Report 9668117 (Version 1)
Quarter: 2013Q4

REPORT INFORMATION
  Report Type: Spontaneous
  Country: US (occurrence: None)
  Receive Date: 20131101
  Receipt Date: 20131101
  Transmission Date: 20140711
  Serious: Yes (Other)
  Sender: FDA-Public Use
  Company Number: 001618372A

PATIENT
  Age: 15 Year
  Sex: Male

DRUGS (5)
  1. PROACTIV RENEWING CLEANSER [Suspect]
     Indication: ACNE
     Dosage: ONCE DAILY DERMAL
     Dates: start: 201310, end: 20131012
  2. PROACTIV REPAIRING TREATMENT [Suspect]
     Indication: ACNE
     Dosage: OCE DAILY DERMAL
     Dates: start: 201310, end: 20131012
  3. PROACTIV DEEP CLEANSING WASH [Suspect]
     Indication: ACNE
     Dosage: ONCE DAILY DERMAL
     Dates: start: 201310, end: 20131012
  4. PROACTIV ADVANCED BLEMISH TREATMENT [Suspect]
     Indication: ACNE
     Dosage: ONCE DAILY DERMAL
     Dates: start: 201310, end: 20131012
  5. PROACTIV BLACKHEAD DISSOLVING GEL [Suspect]
     Indication: ACNE
     Dosage: ONCE DAILY DERMAL
     Dates: start: 201310, end: 20131012

REACTIONS (2)
  - Swelling face [None]
  - Urticaria [None]
